FAERS Safety Report 5324720-X (Version None)
Quarter: 2007Q2

REPORT INFORMATION
  Report Type: 
  Country: None (occurrence: None)
  Receive Date: 20070515
  Receipt Date: 20070510
  Transmission Date: 20071010
  Serious: Yes (Other)
  Sender: FDA-Public Use
  Company Number: US-SP-2007-00691

PATIENT
  Age: 25 Year
  Sex: Female

DRUGS (8)
  1. TUBERSOL [Suspect]
     Indication: TUBERCULIN TEST
     Route: 023
     Dates: start: 20070306
  2. TUBERSOL [Suspect]
     Route: 023
     Dates: start: 20070306
  3. NASONEX [Concomitant]
  4. SINGULAIR [Concomitant]
  5. ADVAIR DISKUS 100/50 [Concomitant]
  6. THEOPHYLLINE [Concomitant]
  7. ALBUTEROL SULATE [Concomitant]
  8. BENADRYL [Concomitant]

REACTIONS (4)
  - CHEST DISCOMFORT [None]
  - COUGH [None]
  - RESPIRATORY DISORDER [None]
  - WHEEZING [None]
